FAERS Safety Report 10041127 (Version 1)
Quarter: 2014Q1

REPORT INFORMATION
  Report Type: Spontaneous
  Country: US (occurrence: US)
  Receive Date: 20140327
  Receipt Date: 20140327
  Transmission Date: 20141002
  Serious: No
  Sender: FDA-Public Use
  Company Number: US-US-EMD SERONO, INC.-7277258

PATIENT
  Sex: Male

DRUGS (6)
  1. REBIF [Suspect]
     Indication: PRODUCT USED FOR UNKNOWN INDICATION
     Route: 058
     Dates: start: 2012
  2. ALLEGRA                            /01314201/ [Concomitant]
     Indication: PRODUCT USED FOR UNKNOWN INDICATION
  3. FLUTICASONE PROPIONATE [Concomitant]
     Indication: PRODUCT USED FOR UNKNOWN INDICATION
  4. SERTRALIN                          /01011401/ [Concomitant]
     Indication: PRODUCT USED FOR UNKNOWN INDICATION
  5. VITAMIN C                          /00008001/ [Concomitant]
     Indication: PRODUCT USED FOR UNKNOWN INDICATION
  6. CENTRUM                            /00554501/ [Concomitant]
     Indication: PRODUCT USED FOR UNKNOWN INDICATION

REACTIONS (4)
  - Injection site discolouration [Not Recovered/Not Resolved]
  - Influenza like illness [Not Recovered/Not Resolved]
  - Injection site bruising [Not Recovered/Not Resolved]
  - Injection site induration [Not Recovered/Not Resolved]
